FAERS Safety Report 24922302 (Version 1)
Quarter: 2025Q1

REPORT INFORMATION
  Report Type: Spontaneous
  Country: US (occurrence: US)
  Receive Date: 20250204
  Receipt Date: 20250204
  Transmission Date: 20250409
  Serious: No
  Sender: AVERITAS
  Company Number: US-GRUNENTHAL-2025-101786

PATIENT
  Sex: Male

DRUGS (3)
  1. QUTENZA [Suspect]
     Active Substance: CAPSAICIN
     Indication: Post herpetic neuralgia
     Route: 003
     Dates: start: 202311, end: 202311
  2. QUTENZA [Suspect]
     Active Substance: CAPSAICIN
     Route: 003
     Dates: start: 20240712, end: 20240712
  3. QUTENZA [Suspect]
     Active Substance: CAPSAICIN
     Route: 003
     Dates: start: 20241015, end: 20241015

REACTIONS (3)
  - Drug ineffective [Unknown]
  - Application site pain [Unknown]
  - Application site erythema [Unknown]
